FAERS Safety Report 5228444-9 (Version None)
Quarter: 2007Q1

REPORT INFORMATION
  Report Type: 
  Country: None (occurrence: None)
  Receive Date: 20070205
  Receipt Date: 20070124
  Transmission Date: 20070707
  Serious: Yes (Hospitalization)
  Sender: FDA-Public Use
  Company Number: GB-BRISTOL-MYERS SQUIBB COMPANY-13663851

PATIENT
  Age: 63 Year
  Sex: Male

DRUGS (13)
  1. CETUXIMAB [Suspect]
     Indication: COLORECTAL CANCER
     Route: 042
     Dates: start: 20061206, end: 20061206
  2. OXALIPLATIN [Suspect]
     Indication: COLORECTAL CANCER
     Dates: start: 20061129, end: 20061129
  3. FLUOROURACIL [Suspect]
     Indication: COLORECTAL CANCER
     Dates: start: 20061129, end: 20061129
  4. FUROSEMIDE [Concomitant]
     Route: 048
     Dates: start: 20061220
  5. SOTALOL HYDROCHLORIDE [Concomitant]
     Route: 048
  6. ATORVASTATIN CALCIUM [Concomitant]
  7. DIGOXIN [Concomitant]
     Route: 048
  8. WARFARIN SODIUM [Concomitant]
  9. TELMISARTAN [Concomitant]
     Route: 048
  10. DICLOFENAC SODIUM [Concomitant]
  11. MISOPROSTOL [Concomitant]
  12. COLCHICINE [Concomitant]
  13. FRAGMIN [Concomitant]
     Dates: start: 20060816

REACTIONS (4)
  - BLOOD GLUCOSE INCREASED [None]
  - GENERAL PHYSICAL HEALTH DETERIORATION [None]
  - HYPOTENSION [None]
  - PYREXIA [None]
